FAERS Safety Report 4971100-2 (Version None)
Quarter: 2006Q1

REPORT INFORMATION
  Report Type: 
  Country: None (occurrence: None)
  Receive Date: 20060228
  Receipt Date: 20051104
  Transmission Date: 20060701
  Serious: Yes (Hospitalization)
  Sender: FDA-Public Use
  Company Number: 05P-163-0316503-00

PATIENT
  Age: 31 Year
  Sex: Male

DRUGS (5)
  1. TRICOR [Suspect]
     Indication: BLOOD TRIGLYCERIDES INCREASED
     Dosage: 145 MG, 1 IN 1 D, PER ORAL
     Route: 048
     Dates: start: 20040101, end: 20051001
  2. COUMADIN [Concomitant]
  3. METOPROLOL [Concomitant]
  4. LANSOPRAZOLE [Concomitant]
  5. VICODIN [Concomitant]

REACTIONS (1)
  - PANCREATITIS [None]
